FAERS Safety Report 6725827-2 (Version None)
Quarter: 2010Q2

REPORT INFORMATION
  Report Type: 
  Country: None (occurrence: None)
  Receive Date: 20100514
  Receipt Date: 20100505
  Transmission Date: 20101027
  Serious: Yes (Other)
  Sender: FDA-Public Use
  Company Number: CA-JNJFOC-20100504095

PATIENT
  Sex: Female
  Weight: 54 kg

DRUGS (5)
  1. REMICADE [Suspect]
     Indication: CROHN'S DISEASE
     Route: 042
     Dates: start: 20100505, end: 20100505
  2. PROZAC [Concomitant]
  3. BENADRYL [Concomitant]
     Indication: PREMEDICATION
     Route: 048
  4. TYLENOL (CAPLET) [Concomitant]
     Indication: PREMEDICATION
     Route: 048
  5. SOLU-CORTEF [Concomitant]
     Indication: PREMEDICATION
     Route: 042

REACTIONS (11)
  - ABDOMINAL PAIN [None]
  - DIZZINESS [None]
  - HEART RATE DECREASED [None]
  - HYPOKINESIA [None]
  - HYPOTENSION [None]
  - INFUSION RELATED REACTION [None]
  - MUSCLE SPASMS [None]
  - NAUSEA [None]
  - PALLOR [None]
  - PRURITUS [None]
  - SOMNOLENCE [None]
